FAERS Safety Report 24322656 (Version 2)
Quarter: 2024Q4

REPORT INFORMATION
  Report Type: Spontaneous
  Country: SE (occurrence: SE)
  Receive Date: 20240916
  Receipt Date: 20241007
  Transmission Date: 20250114
  Serious: Yes (Disabling)
  Sender: ABBVIE
  Company Number: None

PATIENT
  Age: 50 Year
  Sex: Female
  Weight: 59 kg

DRUGS (3)
  1. BOTOX [Suspect]
     Active Substance: ONABOTULINUMTOXINA
     Indication: Migraine
     Dosage: TIME INTERVAL: AS NECESSARY: 400-500 UNITS EVERY THIRD MONTH?FREQUENCY: EVERY 3 MONTHS
     Route: 030
     Dates: start: 2011, end: 2011
  2. BOTOX [Suspect]
     Active Substance: ONABOTULINUMTOXINA
     Indication: Migraine
     Dosage: TIME INTERVAL: AS NECESSARY: 400-500 UNITS EVERY THIRD MONTH?FREQUENCY: EVERY 3 MONTHS
     Route: 030
     Dates: start: 2024, end: 2024
  3. XEOMIN [Suspect]
     Active Substance: INCOBOTULINUMTOXINA
     Indication: Head titubation
     Dosage: 400-500 UNITS EVERY THIRD MONTH
     Route: 030
     Dates: start: 2011, end: 2024

REACTIONS (4)
  - Overdose [Unknown]
  - Dysphagia [Not Recovered/Not Resolved]
  - Dyspnoea [Not Recovered/Not Resolved]
  - Vocal cord paresis [Not Recovered/Not Resolved]

NARRATIVE: CASE EVENT DATE: 20230101
